FAERS Safety Report 5973957-5 (Version None)
Quarter: 2008Q4

REPORT INFORMATION
  Report Type: 
  Country: None (occurrence: None)
  Receive Date: 20081125
  Receipt Date: 20081112
  Transmission Date: 20090506
  Serious: Yes (Hospitalization, Other)
  Sender: FDA-Public Use
  Company Number: SPV1-2008-02400

PATIENT
  Age: 46 Year
  Sex: Female
  Weight: 51 kg

DRUGS (1)
  1. ANAGRELIDE HYDROCHLORIDE [Suspect]
     Indication: THROMBOCYTHAEMIA
     Dosage: 0.5 MG TID, ORAL
     Route: 048
     Dates: start: 20071206

REACTIONS (2)
  - MULTIPLE SCLEROSIS [None]
  - MYELITIS [None]
